FAERS Safety Report 12691858 (Version 7)
Quarter: 2017Q3

REPORT INFORMATION
  Report Type: Spontaneous
  Country: FR (occurrence: FR)
  Receive Date: 20160827
  Receipt Date: 20170816
  Transmission Date: 20171127
  Serious: Yes (Other)
  Sender: FDA-Public Use
  Company Number: FR-AMGEN-FRASP2016089226

PATIENT
  Age: 78 Year
  Sex: Female
  Weight: 58 kg

DRUGS (6)
  1. XGEVA [Suspect]
     Active Substance: DENOSUMAB
     Indication: METASTASES TO BONE
  2. COTAREG [Concomitant]
     Active Substance: HYDROCHLOROTHIAZIDE\VALSARTAN
     Indication: HYPERTENSION
     Dosage: 160/25, QD
     Route: 048
     Dates: start: 2000
  3. XGEVA [Suspect]
     Active Substance: DENOSUMAB
     Indication: BREAST CANCER
     Dosage: UNK, QMO
     Route: 058
     Dates: start: 20160518, end: 20160624
  4. PALBOCICLIB [Concomitant]
     Active Substance: PALBOCICLIB
     Indication: BREAST CANCER METASTATIC
     Dosage: 75 MG, QD
     Route: 048
     Dates: start: 20160506
  5. FASLODEX [Concomitant]
     Active Substance: FULVESTRANT
     Indication: BREAST CANCER METASTATIC
     Dosage: 500 MG, QMO
     Route: 030
     Dates: start: 20160311
  6. ZANIDIP [Concomitant]
     Active Substance: LERCANIDIPINE HYDROCHLORIDE
     Indication: HYPERTENSION
     Dosage: 10 UNK, QD
     Route: 048
     Dates: start: 2000

REACTIONS (15)
  - Inappropriate schedule of drug administration [Unknown]
  - Neutrophil count abnormal [Recovered/Resolved]
  - Blood creatinine abnormal [Not Recovered/Not Resolved]
  - Bronchitis [Recovered/Resolved]
  - Renal failure [Unknown]
  - Electrocardiogram abnormal [Unknown]
  - Chronic obstructive pulmonary disease [Unknown]
  - Periodontal disease [Unknown]
  - Loose tooth [Unknown]
  - Aspartate aminotransferase abnormal [Recovered/Resolved]
  - White blood cell count abnormal [Not Recovered/Not Resolved]
  - Anaemia [Not Recovered/Not Resolved]
  - Neutropenia [Recovered/Resolved]
  - Haemoglobin abnormal [Unknown]
  - Dyspnoea exertional [Not Recovered/Not Resolved]

NARRATIVE: CASE EVENT DATE: 2016
